FAERS Safety Report 11784188 (Version 1)
Quarter: 2015Q4

REPORT INFORMATION
  Report Type: Spontaneous
  Country: US (occurrence: US)
  Receive Date: 20151128
  Receipt Date: 20151128
  Transmission Date: 20160305
  Serious: No
  Sender: FDA-Public Use
  Company Number: US-INVAGEN PHARMACEUTICALS, INC.-1044731

PATIENT
  Age: 59 Year
  Sex: Female

DRUGS (2)
  1. VALSARTAN. [Suspect]
     Active Substance: VALSARTAN
     Route: 048
  2. CITALOPRAM [Suspect]
     Active Substance: CITALOPRAM HYDROBROMIDE
     Indication: DEPRESSION
     Route: 048

REACTIONS (4)
  - Confusional state [Recovered/Resolved]
  - Headache [Recovered/Resolved]
  - Feeling abnormal [Recovered/Resolved]
  - Potentiating drug interaction [Recovered/Resolved]

NARRATIVE: CASE EVENT DATE: 20150726
